FAERS Safety Report 14615264 (Version 1)
Quarter: 2018Q1

REPORT INFORMATION
  Report Type: Spontaneous
  Country: US (occurrence: US)
  Receive Date: 20180308
  Receipt Date: 20180308
  Transmission Date: 20180509
  Serious: No
  Sender: FDA-Public Use
  Company Number: US-ELI_LILLY_AND_COMPANY-US201803002955

PATIENT
  Sex: Male

DRUGS (5)
  1. BASAGLAR [Suspect]
     Active Substance: INSULIN GLARGINE
     Dosage: 60 U, EACH EVENING
     Route: 065
     Dates: start: 201801
  2. BASAGLAR [Suspect]
     Active Substance: INSULIN GLARGINE
     Indication: TYPE 2 DIABETES MELLITUS
     Dosage: 45 U, EACH MORNING
     Route: 065
     Dates: start: 201801
  3. BASAGLAR [Suspect]
     Active Substance: INSULIN GLARGINE
     Dosage: 60 U, EACH EVENING
     Route: 065
  4. BASAGLAR [Suspect]
     Active Substance: INSULIN GLARGINE
     Dosage: 45 U, EACH MORNING
     Route: 065
  5. METFORMIN [Concomitant]
     Active Substance: METFORMIN HYDROCHLORIDE
     Indication: TYPE 2 DIABETES MELLITUS

REACTIONS (4)
  - Underdose [Unknown]
  - Inappropriate schedule of drug administration [Unknown]
  - Agitation [Unknown]
  - Nervousness [Unknown]
